FAERS Safety Report 9059163 (Version 1)
Quarter: 2013Q1

REPORT INFORMATION
  Report Type: Spontaneous
  Country: US (occurrence: US)
  Receive Date: 20130211
  Receipt Date: 20130211
  Transmission Date: 20140127
  Serious: No
  Sender: FDA-Public Use
  Company Number: US-BRISTOL-MYERS SQUIBB COMPANY-17115163

PATIENT
  Age: 54 Year
  Sex: Male

DRUGS (2)
  1. GLUCOPHAGE [Suspect]
     Indication: TYPE 2 DIABETES MELLITUS
     Dates: start: 201207, end: 2012
  2. LANTUS [Suspect]
     Indication: TYPE 2 DIABETES MELLITUS
     Dosage: 1DF = PRESNT 14UNITS, IT IS B/W 12TO16
     Route: 058
     Dates: start: 201207

REACTIONS (1)
  - Dizziness [Unknown]
